FAERS Safety Report 11179539 (Version 2)
Quarter: 2015Q3

REPORT INFORMATION
  Report Type: Spontaneous
  Country: US (occurrence: US)
  Receive Date: 20150611
  Receipt Date: 20150707
  Transmission Date: 20151125
  Serious: Yes (Death, Other)
  Sender: FDA-Public Use
  Company Number: US-AUROBINDO-AUR-APL-2015-04971

PATIENT
  Age: 79 Year
  Sex: Female

DRUGS (2)
  1. CIPROFLOXACIN. [Suspect]
     Active Substance: CIPROFLOXACIN
     Indication: PRODUCT USED FOR UNKNOWN INDICATION
     Route: 065
  2. METHYLPREDNISOLONE. [Suspect]
     Active Substance: METHYLPREDNISOLONE
     Indication: STEVENS-JOHNSON SYNDROME
     Dosage: 80 MG, EVERY 12 HOURS
     Route: 042

REACTIONS (15)
  - Bacterial infection [Unknown]
  - Toxicity to various agents [Unknown]
  - Disseminated intravascular coagulation [Fatal]
  - Cough [Unknown]
  - Dyspnoea [Unknown]
  - Rash [Unknown]
  - Rash maculo-papular [Unknown]
  - Leukocytosis [Unknown]
  - Bronchopulmonary aspergillosis [Unknown]
  - Oral disorder [Unknown]
  - Multi-organ failure [Fatal]
  - Acute kidney injury [Unknown]
  - Encephalopathy [Unknown]
  - Myocardial infarction [Unknown]
  - Pneumonia [Unknown]
